FAERS Safety Report 12783505 (Version 1)
Quarter: 2016Q3

REPORT INFORMATION
  Report Type: Spontaneous
  Country: US (occurrence: US)
  Receive Date: 20160927
  Receipt Date: 20160927
  Transmission Date: 20161109
  Serious: No
  Sender: FDA-Public Use
  Company Number: US-AMGEN-USASP2016125084

PATIENT
  Age: 71 Year
  Sex: Female

DRUGS (10)
  1. AMITRIPTYLINE [Concomitant]
     Active Substance: AMITRIPTYLINE
     Dosage: UNK
  2. RANEXA [Concomitant]
     Active Substance: RANOLAZINE
     Dosage: UNK
  3. LEUCOVORIN. [Concomitant]
     Active Substance: LEUCOVORIN
     Dosage: UNK
  4. HYDROXYCHLOROQUINE [Concomitant]
     Active Substance: HYDROXYCHLOROQUINE
     Dosage: UNK
  5. FOLIC ACID. [Concomitant]
     Active Substance: FOLIC ACID
     Dosage: UNK
  6. METHOTREXATE. [Concomitant]
     Active Substance: METHOTREXATE
     Dosage: UNK
  7. METFORMIN [Concomitant]
     Active Substance: METFORMIN HYDROCHLORIDE
     Dosage: UNK
  8. ENBREL [Suspect]
     Active Substance: ETANERCEPT
     Indication: RHEUMATOID ARTHRITIS
     Dosage: UNK, UNK
     Route: 058
     Dates: start: 201502
  9. LIPITOR [Concomitant]
     Active Substance: ATORVASTATIN CALCIUM
     Dosage: UNK
  10. LISINOPRIL. [Concomitant]
     Active Substance: LISINOPRIL
     Dosage: UNK

REACTIONS (1)
  - Arthralgia [Unknown]
